FAERS Safety Report 21086627 (Version 4)
Quarter: 2022Q3

REPORT INFORMATION
  Report Type: Report from Study
  Country: AR (occurrence: AR)
  Receive Date: 20220715
  Receipt Date: 20220908
  Transmission Date: 20221026
  Serious: Yes (Hospitalization, Other)
  Sender: FDA-Public Use
  Company Number: AR-JNJFOC-20220716133

PATIENT
  Age: 69 Year
  Sex: Female
  Weight: 83 kg

DRUGS (1)
  1. SIMPONI [Suspect]
     Active Substance: GOLIMUMAB
     Indication: Rheumatoid arthritis
     Route: 058
     Dates: start: 20180615

REACTIONS (9)
  - COVID-19 [Recovered/Resolved]
  - Prosthesis implantation [Unknown]
  - Arthropathy [Recovering/Resolving]
  - Condition aggravated [Recovering/Resolving]
  - Fibromyalgia [Unknown]
  - Drug ineffective [Unknown]
  - Adverse event [Recovering/Resolving]
  - Gait disturbance [Recovering/Resolving]
  - Peripheral swelling [Recovering/Resolving]

NARRATIVE: CASE EVENT DATE: 20190102
